FAERS Safety Report 21082690 (Version 2)
Quarter: 2022Q3

REPORT INFORMATION
  Report Type: Spontaneous
  Country: US (occurrence: US)
  Receive Date: 20220714
  Receipt Date: 20220902
  Transmission Date: 20221026
  Serious: No
  Sender: FDA-Public Use
  Company Number: US-BRISTOL-MYERS SQUIBB COMPANY-2022-074043

PATIENT
  Age: 58 Year
  Sex: Male

DRUGS (2)
  1. REVLIMID [Suspect]
     Active Substance: LENALIDOMIDE
     Indication: Plasma cell myeloma
     Dosage: FREQ - TAKE 1 CAPSULE BY MOUTH ONCE DAILY FOR 21 DAYS,FOLLOWED BY 1 WEEK OFF,THEN REPEAT CYCLE.
     Route: 048
     Dates: start: 20220503
  2. REVLIMID [Suspect]
     Active Substance: LENALIDOMIDE
     Route: 048
     Dates: start: 20220714

REACTIONS (3)
  - Diarrhoea [Unknown]
  - Pruritus [Unknown]
  - Rash [Unknown]
